FAERS Safety Report 4823077-8 (Version None)
Quarter: 2005Q4

REPORT INFORMATION
  Report Type: 
  Country: None (occurrence: None)
  Receive Date: 20051108
  Receipt Date: 20051101
  Transmission Date: 20060501
  Serious: Yes (Hospitalization)
  Sender: FDA-Public Use
  Company Number: US-MERCK-0511USA00072

PATIENT
  Age: 52 Year
  Sex: Male

DRUGS (6)
  1. FOSAMAX [Suspect]
     Indication: OSTEOPOROSIS
     Route: 048
     Dates: start: 20041001, end: 20041101
  2. ACTONEL [Suspect]
     Indication: OSTEOPOROSIS
     Route: 048
     Dates: start: 20041101, end: 20050201
  3. NORMODYNE [Concomitant]
     Route: 065
  4. PERCOCET [Concomitant]
     Route: 065
  5. PEPCID [Concomitant]
     Route: 065
  6. CALCIUM (UNSPECIFIED) AND VITAMIN D (UNSPECIFIED) [Concomitant]
     Route: 065

REACTIONS (9)
  - BODY HEIGHT DECREASED [None]
  - BONE DENSITY DECREASED [None]
  - FOOT FRACTURE [None]
  - HIATUS HERNIA [None]
  - OESOPHAGEAL STENOSIS [None]
  - RIB FRACTURE [None]
  - SPINAL FRACTURE [None]
  - VOMITING [None]
  - WEIGHT DECREASED [None]
